FAERS Safety Report 24551598 (Version 2)
Quarter: 2024Q4

REPORT INFORMATION
  Report Type: Report from Study
  Country: US (occurrence: US)
  Receive Date: 20241026
  Receipt Date: 20241118
  Transmission Date: 20250115
  Serious: No
  Sender: ELI LILLY AND COMPANY
  Company Number: US-ELI_LILLY_AND_COMPANY-US202410016393

PATIENT
  Age: 69 Year
  Sex: Female

DRUGS (1)
  1. TALTZ [Suspect]
     Active Substance: IXEKIZUMAB
     Indication: Psoriasis
     Dosage: 80 MG, OTHER (80 MG, OTHER, EVERY FOUR WEEKS)
     Route: 058
     Dates: start: 20240619

REACTIONS (3)
  - Alopecia [Unknown]
  - Trichorrhexis [Unknown]
  - Psoriasis [Unknown]
